FAERS Safety Report 9406325 (Version 1)
Quarter: 2013Q3

REPORT INFORMATION
  Report Type: Spontaneous
  Country: FR (occurrence: FR)
  Receive Date: 20130717
  Receipt Date: 20130717
  Transmission Date: 20140515
  Serious: Yes (Hospitalization, Other)
  Sender: FDA-Public Use
  Company Number: FR-PFIZER INC-2013206044

PATIENT
  Age: 62 Year
  Sex: Female

DRUGS (6)
  1. SUTENT [Suspect]
     Indication: RENAL CANCER METASTATIC
     Dosage: 50 MG, DAILY 4 WEEKS OUT OFF  6 FOR THE FIRST TWO CURES
     Route: 048
     Dates: start: 20120423
  2. SUTENT [Suspect]
     Dosage: 37.5 MG, DAILY 4 WEEKS OUT OFF 6 FOR THE FOLLOWING 5 CURES
     Route: 048
     Dates: end: 20130206
  3. ATACAND [Concomitant]
     Dosage: UNK
  4. AMLOR [Concomitant]
     Dosage: UNK
  5. MOPRAL [Concomitant]
     Dosage: UNK
  6. XANAX [Concomitant]
     Dosage: UNK

REACTIONS (5)
  - Thrombotic microangiopathy [Recovered/Resolved]
  - Haematotoxicity [Recovered/Resolved]
  - Hypothyroidism [Not Recovered/Not Resolved]
  - Disease progression [Unknown]
  - Renal cancer metastatic [Unknown]
